FAERS Safety Report 21182842 (Version 1)
Quarter: 2022Q3

REPORT INFORMATION
  Report Type: Spontaneous
  Country: DE (occurrence: DE)
  Receive Date: 20220808
  Receipt Date: 20220808
  Transmission Date: 20221026
  Serious: Yes (Other)
  Sender: FDA-Public Use
  Company Number: DE-NOVARTISPH-NVSC2022DE177436

PATIENT
  Age: 38 Year
  Sex: Female

DRUGS (1)
  1. COSENTYX [Suspect]
     Active Substance: SECUKINUMAB
     Indication: Psoriasis
     Dosage: UNK
     Route: 058
     Dates: start: 2020

REACTIONS (8)
  - Thoracic spinal stenosis [Unknown]
  - Hypoaesthesia [Unknown]
  - Headache [Unknown]
  - Myopia [Unknown]
  - Neurological examination abnormal [Unknown]
  - Malaise [Unknown]
  - Muscular weakness [Unknown]
  - Paraesthesia [Unknown]
